FAERS Safety Report 7343115-0 (Version None)
Quarter: 2011Q1

REPORT INFORMATION
  Report Type: 
  Country: None (occurrence: None)
  Receive Date: 20110301
  Receipt Date: 20110218
  Transmission Date: 20110831
  Serious: Yes (Other)
  Sender: FDA-Public Use
  Company Number: SP03514

PATIENT
  Age: 73 Year
  Sex: Male

DRUGS (2)
  1. OSMOPREP [Suspect]
     Indication: BOWEL PREPARATION
     Dosage: (32 TABLETS),ORAL
     Route: 048
     Dates: start: 20110111, end: 20110112
  2. OMEPRAZOLE [Concomitant]

REACTIONS (4)
  - GASTRIC ULCER [None]
  - GASTRITIS [None]
  - GASTROINTESTINAL NECROSIS [None]
  - PAIN [None]
